FAERS Safety Report 8411548 (Version 2)
Quarter: 2013Q3

REPORT INFORMATION
  Report Type: Report from Study
  Country: DE (occurrence: DE)
  Receive Date: 20120217
  Receipt Date: 20130917
  Transmission Date: 20140515
  Serious: Yes (Hospitalization, Other)
  Sender: FDA-Public Use
  Company Number: DE-ROCHE-1035608

PATIENT
  Age: 44 Year
  Sex: Male
  Weight: 61 kg

DRUGS (15)
  1. MYCOPHENOLATE MOFETIL [Suspect]
     Indication: RENAL TRANSPLANT
     Dosage: FREQUENCY 2 (1-0-1) 27/09/2009: LAST DOSE PROR TO SAE
     Route: 048
     Dates: start: 20090529
  2. TACROLIMUS [Suspect]
     Indication: RENAL TRANSPLANT
     Dosage: 6 MG/PER DIE
     Route: 048
     Dates: start: 20090629, end: 20091016
  3. TACROLIMUS [Suspect]
     Dosage: 1-0-0
     Route: 048
     Dates: start: 20090529, end: 20090621
  4. TACROLIMUS [Suspect]
     Route: 048
     Dates: start: 20090626, end: 20090628
  5. TACROLIMUS [Suspect]
     Dosage: FREQUENCY: 1-0-0, 27/09/2009: LAST DOSE PROR TO SAE
     Route: 048
     Dates: start: 20090528
  6. TACROLIMUS [Suspect]
     Dosage: 9  MG/PER DIE
     Route: 048
     Dates: start: 20090923
  7. TACROLIMUS [Suspect]
     Dosage: 8  MG/PER DIE
     Route: 048
     Dates: start: 20090930
  8. TACROLIMUS [Suspect]
     Dosage: 6 MG/PER DIE
     Route: 048
     Dates: start: 20091001
  9. BASILIXIMAB [Suspect]
     Indication: RENAL TRANSPLANT
     Dosage: DATE OF LAST DOSE PRIOR TO SAE: 02JUN2009
     Route: 042
     Dates: start: 20090528
  10. PREDNISONE [Suspect]
     Indication: RENAL TRANSPLANT
     Dosage: FLUID AND FREQUENCY 1
     Route: 042
  11. PREDNISONE [Suspect]
     Dosage: FREQUENCY 1-0-0 AND LAST DOSE PRIOR TO SAE: 27/SEP/2009
     Route: 048
     Dates: start: 20090826
  12. PREDNISONE [Suspect]
     Dosage: FREQUENCY 1-0-0
     Route: 048
     Dates: start: 20090529, end: 20090721
  13. PREDNISONE [Suspect]
     Route: 048
     Dates: start: 20090624, end: 20090624
  14. PREDNISONE [Suspect]
     Route: 048
     Dates: start: 20090627, end: 20090627
  15. PREDNISONE [Suspect]
     Route: 048
     Dates: end: 20090625

REACTIONS (6)
  - Nephrosclerosis [Recovered/Resolved]
  - Glomerulonephritis [Recovered/Resolved]
  - Urosepsis [Recovered/Resolved]
  - Hydronephrosis [Recovered/Resolved]
  - Urinary tract infection [Recovered/Resolved]
  - Renal tubular disorder [Recovered/Resolved]
